FAERS Safety Report 5916678-7 (Version None)
Quarter: 2008Q4

REPORT INFORMATION
  Report Type: 
  Country: None (occurrence: None)
  Receive Date: 20081013
  Receipt Date: 20080929
  Transmission Date: 20090506
  Serious: Yes (Hospitalization)
  Sender: FDA-Public Use
  Company Number: GT-AVENTIS-200819568GDDC

PATIENT
  Age: 42 Year
  Sex: Female
  Weight: 113.6 kg

DRUGS (5)
  1. GLIMEPIRIDE [Suspect]
     Dosage: DOSE: LEVEL 2
     Route: 048
     Dates: start: 20070701
  2. GLIMEPIRIDE [Suspect]
     Dosage: DOSE: LEVEL 1
     Route: 048
     Dates: start: 20070117, end: 20070629
  3. METFORMIN HCL [Concomitant]
  4. AMARYL [Concomitant]
  5. ACTOS [Concomitant]

REACTIONS (8)
  - ABDOMINAL PAIN [None]
  - ASTHENIA [None]
  - BLOOD GLUCOSE INCREASED [None]
  - DIZZINESS [None]
  - DRUG INEFFECTIVE [None]
  - HEADACHE [None]
  - PYREXIA [None]
  - URINARY TRACT INFECTION [None]
